FAERS Safety Report 9773649 (Version 3)
Quarter: 2014Q1

REPORT INFORMATION
  Report Type: Spontaneous
  Country: US (occurrence: US)
  Receive Date: 20131219
  Receipt Date: 20140317
  Transmission Date: 20141002
  Serious: No
  Sender: FDA-Public Use
  Company Number: US-GILEAD-2013-0090338

PATIENT
  Age: 45 Year
  Sex: Male

DRUGS (10)
  1. LETAIRIS [Suspect]
     Indication: PULMONARY ARTERIAL HYPERTENSION
     Dosage: 5 MG, QD
     Route: 048
     Dates: start: 20131109
  2. LETAIRIS [Suspect]
     Indication: DRUG ABUSE
  3. FUROSEMIDE [Concomitant]
  4. SILDENAFIL [Concomitant]
  5. SPIRONOLACTONE [Concomitant]
  6. PROPRANOLOL [Concomitant]
  7. FLUOXETINE [Concomitant]
  8. FERROUS GLUCONATE [Concomitant]
  9. OMEPRAZOLE [Concomitant]
  10. ASPIRIN [Concomitant]

REACTIONS (4)
  - Oedema peripheral [Unknown]
  - Swelling face [Unknown]
  - Oedema peripheral [Unknown]
  - Swelling face [Unknown]
